FAERS Safety Report 15862744 (Version 1)
Quarter: 2019Q1

REPORT INFORMATION
  Report Type: Spontaneous
  Country: JP (occurrence: JP)
  Receive Date: 20190124
  Receipt Date: 20190124
  Transmission Date: 20190417
  Serious: Yes (Other)
  Sender: FDA-Public Use
  Company Number: JP-BAYER-2019-016926

PATIENT
  Age: 23 Year
  Sex: Female

DRUGS (1)
  1. ASPIRIN 100 % [Suspect]
     Active Substance: ASPIRIN
     Dosage: 30G
     Route: 048

REACTIONS (3)
  - Renal impairment [Recovering/Resolving]
  - Renal impairment [None]
  - Overdose [None]
